FAERS Safety Report 7720446-3 (Version None)
Quarter: 2011Q3

REPORT INFORMATION
  Report Type: 
  Country: None (occurrence: None)
  Receive Date: 20110831
  Receipt Date: 20110615
  Transmission Date: 20111222
  Serious: No
  Sender: FDA-Public Use
  Company Number: US-GLAXOSMITHKLINE-A0931629A

PATIENT
  Age: 23 Year
  Sex: Male

DRUGS (7)
  1. METHOTREXATE [Concomitant]
  2. KLONOPIN [Concomitant]
  3. PREDNISONE [Concomitant]
  4. CLONIDINE [Concomitant]
  5. EPIVIR-HBV [Suspect]
     Indication: HEPATITIS B
     Dosage: 1TAB PER DAY
     Route: 048
     Dates: start: 20100901
  6. NORVASC [Concomitant]
  7. BACTRIM [Concomitant]

REACTIONS (1)
  - ALOPECIA [None]
